FAERS Safety Report 20899170 (Version 1)
Quarter: 2022Q2

REPORT INFORMATION
  Report Type: Spontaneous
  Country: CA (occurrence: CA)
  Receive Date: 20220601
  Receipt Date: 20220601
  Transmission Date: 20220721
  Serious: Yes (Hospitalization, Other)
  Sender: FDA-Public Use
  Company Number: None

PATIENT
  Sex: Female

DRUGS (1)
  1. LETROZOLE [Suspect]
     Active Substance: LETROZOLE
     Indication: Product used for unknown indication
     Route: 065

REACTIONS (9)
  - Ascites [Unknown]
  - Disease progression [Unknown]
  - Drug ineffective [Unknown]
  - Gastrointestinal disorder [Unknown]
  - Hilar lymphadenopathy [Unknown]
  - Pelvic discomfort [Unknown]
  - Pleural effusion [Unknown]
  - Pulmonary embolism [Unknown]
  - Respiratory symptom [Unknown]
